FAERS Safety Report 9403201 (Version 1)
Quarter: 2013Q3

REPORT INFORMATION
  Report Type: Spontaneous
  Country: US (occurrence: US)
  Receive Date: 20130716
  Receipt Date: 20130716
  Transmission Date: 20140515
  Serious: Yes (Other)
  Sender: FDA-Public Use
  Company Number: CHPA2013US011153

PATIENT
  Sex: Female

DRUGS (1)
  1. EX-LAX MAX STR LAX PILLS SENNA [Suspect]
     Indication: LAXATIVE SUPPORTIVE CARE
     Dosage: UNK, UNK
     Route: 048

REACTIONS (1)
  - Cardiac disorder [Not Recovered/Not Resolved]
